FAERS Safety Report 9838809 (Version 2)
Quarter: 2014Q4

REPORT INFORMATION
  Report Type: Spontaneous
  Country: US (occurrence: None)
  Receive Date: 20131205
  Receipt Date: 20141205
  Transmission Date: 20150529
  Serious: Yes (Hospitalization)
  Sender: FDA-Public Use
  Company Number: 163-POMAL-13111176

PATIENT
  Age: 64 Year
  Sex: Male
  Weight: 86.18 kg

DRUGS (13)
  1. LIPITOR (ATORVASTATIN) (TABLETS) [Concomitant]
  2. PROTONIX (PANTOPRAZOLE SODIUM SESQUIHYDRATE) TABLETS) [Concomitant]
  3. CELEBREX (CELECOXIB)(CAPSULES) [Concomitant]
  4. GABAPENTIN (GABAPENTIN) (CAPSULES) [Concomitant]
  5. POMALYST [Suspect]
     Active Substance: POMALIDOMIDE
     Indication: PLASMA CELL MYELOMA
     Route: 048
     Dates: start: 201301
  6. CENTRUM SILVER (TABLETS) [Concomitant]
  7. DEXAMETHASONE (DEXAMETHASONE (TABLETS) [Concomitant]
  8. FUROSEMIDE (FUROSEMIDE) (TABLETS) [Concomitant]
  9. EFFEXOR (VENLAFAXINE HYDROCHLORIDE) CAPSULES [Concomitant]
  10. METFORMIN [Concomitant]
     Active Substance: METFORMIN HYDROCHLORIDE
  11. METOPROLOL [Concomitant]
     Active Substance: METOPROLOL
  12. TRADJENTA [Concomitant]
     Active Substance: LINAGLIPTIN
  13. TAMSULOSIN [Concomitant]
     Active Substance: TAMSULOSIN

REACTIONS (2)
  - Pneumonia [None]
  - Thrombosis [None]

NARRATIVE: CASE EVENT DATE: 201309
